FAERS Safety Report 10375270 (Version 1)
Quarter: 2014Q3

REPORT INFORMATION
  Report Type: Spontaneous
  Country: US (occurrence: US)
  Receive Date: 20140811
  Receipt Date: 20140811
  Transmission Date: 20150326
  Serious: No
  Sender: FDA-Public Use
  Company Number: US-009507513-1408USA002843

PATIENT
  Sex: Male

DRUGS (2)
  1. JANUMET [Suspect]
     Active Substance: METFORMIN HYDROCHLORIDE\SITAGLIPTIN PHOSPHATE
     Indication: TYPE 2 DIABETES MELLITUS
     Dosage: DOSE: 50/1000MG, FREQUENCY NOT REPORTED
     Route: 048
     Dates: start: 201406
  2. JANUMET [Suspect]
     Active Substance: METFORMIN HYDROCHLORIDE\SITAGLIPTIN PHOSPHATE
     Dosage: DOSE: 50/500MG, FREQUENCY NOT REPORTED
     Route: 048
     Dates: start: 2011, end: 201406

REACTIONS (4)
  - Gastric disorder [Unknown]
  - Malaise [Unknown]
  - Dizziness [Unknown]
  - Headache [Unknown]
